FAERS Safety Report 10342202 (Version 2)
Quarter: 2014Q3

REPORT INFORMATION
  Report Type: Spontaneous
  Country: US (occurrence: US)
  Receive Date: 20140725
  Receipt Date: 20140917
  Transmission Date: 20150326
  Serious: No
  Sender: FDA-Public Use
  Company Number: US-PFIZER INC-2014205255

PATIENT
  Age: 50 Year
  Sex: Male
  Weight: 102 kg

DRUGS (3)
  1. VIAGRA [Suspect]
     Active Substance: SILDENAFIL CITRATE
     Indication: ERECTILE DYSFUNCTION
     Dosage: (300 TO 500 MG), AS NEEDED
     Route: 048
     Dates: start: 2008
  2. VIAGRA [Suspect]
     Active Substance: SILDENAFIL CITRATE
     Dosage: HALF TABLET, UNK
  3. TESTOSTERONE. [Concomitant]
     Active Substance: TESTOSTERONE
     Dosage: UNK

REACTIONS (4)
  - Flushing [Unknown]
  - Suspected counterfeit product [Unknown]
  - Drug ineffective [Unknown]
  - Nasal congestion [Unknown]

NARRATIVE: CASE EVENT DATE: 2008
